FAERS Safety Report 8422368 (Version 13)
Quarter: 2013Q4

REPORT INFORMATION
  Report Type: Report from Study
  Country: JP (occurrence: JP)
  Receive Date: 20120223
  Receipt Date: 20131127
  Transmission Date: 20140711
  Serious: Yes (Hospitalization, Other)
  Sender: FDA-Public Use
  Company Number: JP-VERTEX PHARMACEUTICALS INC.-AE-2012-002423

PATIENT
  Age: 62 Year
  Sex: Male

DRUGS (23)
  1. VX-950 (TELAPREVIR) [Suspect]
     Indication: CHRONIC HEPATITIS C
     Dosage: 2250 MG, QD
     Route: 048
     Dates: start: 20120210, end: 20120302
  2. VX-950 (TELAPREVIR) [Suspect]
     Dosage: 1500 MG, QD
     Route: 048
     Dates: start: 20120303, end: 20120316
  3. PEGINTRON [Suspect]
     Indication: CHRONIC HEPATITIS C
     Dosage: 1.5 ?G/KG, QW
     Route: 058
     Dates: start: 20120210
  4. REBETOL [Suspect]
     Indication: CHRONIC HEPATITIS C
     Dosage: 800 MG, QD
     Route: 048
     Dates: start: 20120210, end: 20120309
  5. REBETOL [Suspect]
     Dosage: 400 MG, QD
     Route: 048
     Dates: start: 20120310, end: 20120316
  6. REBETOL [Suspect]
     Dosage: 400 MG, QD
     Route: 048
     Dates: start: 20120326, end: 20120327
  7. REBETOL [Suspect]
     Dosage: 400 MG, QD
     Route: 048
     Dates: start: 20120419, end: 20120504
  8. REBETOL [Suspect]
     Dosage: 200 MG, QD
     Route: 048
     Dates: start: 20120505, end: 20120614
  9. REBETOL [Suspect]
     Dosage: 300 MG, QD
     Route: 048
     Dates: start: 20120615, end: 20120621
  10. REBETOL [Suspect]
     Dosage: 400 MG, QD
     Route: 048
     Dates: start: 20120622, end: 20120705
  11. REBETOL [Suspect]
     Dosage: 600 MG, QD
     Route: 048
     Dates: start: 20120706
  12. MYSLEE [Concomitant]
     Dosage: 10 G, QD
     Route: 048
     Dates: start: 20120303
  13. MYSLEE [Concomitant]
     Dosage: 10 G, QD
     Route: 048
  14. SEDEKOPAN [Concomitant]
     Dosage: 1 MG, QD
     Route: 048
  15. GASMOTIN [Concomitant]
     Dosage: 15 MG, QD
     Route: 048
  16. CONSTAN [Concomitant]
     Dosage: 1.2 MG, QD
     Route: 048
  17. ALLOPURINOL [Concomitant]
     Dosage: 200 MG, QD
     Route: 048
  18. PARIET [Concomitant]
     Dosage: 10 MG, QD
     Route: 048
     Dates: start: 20120319
  19. GASTROM BOEHRINGER [Concomitant]
     Dosage: 3 G, QD
     Route: 048
     Dates: start: 20120319
  20. GASTROM BOEHRINGER [Concomitant]
     Dosage: 3 MG, QD
     Route: 048
  21. GASTROM BOEHRINGER [Concomitant]
     Dosage: 3 G, QD
     Route: 048
  22. MAGMITT [Concomitant]
     Dosage: 990 MG, QD
     Route: 048
     Dates: start: 20120216
  23. PAXIL [Concomitant]
     Dosage: 20 MG, QD
     Route: 048
     Dates: start: 20120802

REACTIONS (5)
  - Depressive symptom [Recovered/Resolved]
  - Blood creatinine increased [Recovered/Resolved]
  - Hyperuricaemia [Recovered/Resolved]
  - Anaemia [Recovered/Resolved]
  - Duodenal ulcer [Recovered/Resolved]
